FAERS Safety Report 8765631 (Version 3)
Quarter: 2012Q4

REPORT INFORMATION
  Report Type: 
  Country: US (occurrence: US)
  Receive Date: 20120903
  Receipt Date: 20121017
  Transmission Date: 20130627
  Serious: Yes (Other)
  Sender: FDA-Public Use
  Company Number: PHEH2012US016770

PATIENT
  Age: 77 Year
  Sex: Female

DRUGS (3)
  1. RECLAST [Suspect]
     Indication: OSTEOPOROSIS
     Dosage: 5 mg/100ml, yearly
     Route: 042
     Dates: start: 20120710
  2. SYNTHROID [Concomitant]
     Dosage: UNK UKN, UNK
  3. PREMPRO [Concomitant]
     Dosage: UNK UKN, UNK

REACTIONS (10)
  - Bronchitis [Unknown]
  - Cough [Recovering/Resolving]
  - Rash [Recovering/Resolving]
  - Muscle spasms [Recovering/Resolving]
  - Pollakiuria [Unknown]
  - Erythema [Unknown]
  - Headache [Unknown]
  - Fatigue [Unknown]
  - Neck pain [Unknown]
  - Influenza like illness [Unknown]
